FAERS Safety Report 5140371-4 (Version None)
Quarter: 2006Q4

REPORT INFORMATION
  Report Type: 
  Country: None (occurrence: None)
  Receive Date: 20061031
  Receipt Date: 20061023
  Transmission Date: 20070319
  Serious: Yes (Other)
  Sender: FDA-Public Use
  Company Number: GB-JNJFOC-20060802239

PATIENT
  Sex: Female
  Weight: 62 kg

DRUGS (5)
  1. REMICADE [Suspect]
     Indication: RHEUMATOID ARTHRITIS
     Route: 042
  2. METHOTREXATE [Concomitant]
  3. ACETAMINOPHEN W/ CODEINE [Concomitant]
  4. DICLOFENAC [Concomitant]
  5. FOLIC ACID [Concomitant]

REACTIONS (1)
  - B-CELL LYMPHOMA [None]
